FAERS Safety Report 5173196-4 (Version None)
Quarter: 2006Q4

REPORT INFORMATION
  Report Type: 
  Country: None (occurrence: None)
  Receive Date: 20061214
  Receipt Date: 20061108
  Transmission Date: 20070319
  Serious: Yes (Life-Threatening)
  Sender: FDA-Public Use
  Company Number: 2006AP05336

PATIENT
  Age: 89 Year
  Sex: Female
  Weight: 42 kg

DRUGS (2)
  1. MEROPEN [Suspect]
     Indication: PERINEPHRIC ABSCESS
     Route: 041
     Dates: start: 20060908, end: 20060919
  2. MINOCYCLINE HCL [Suspect]
     Indication: PERINEPHRIC ABSCESS
     Route: 041
     Dates: start: 20060911, end: 20060921

REACTIONS (1)
  - PANCYTOPENIA [None]
